FAERS Safety Report 6770856-6 (Version None)
Quarter: 2010Q2

REPORT INFORMATION
  Report Type: 
  Country: None (occurrence: None)
  Receive Date: 20100614
  Receipt Date: 20100614
  Transmission Date: 20101027
  Serious: Yes (Other)
  Sender: FDA-Public Use
  Company Number: None

PATIENT
  Sex: Female
  Weight: 79.3795 kg

DRUGS (2)
  1. AMBIEN CR [Suspect]
     Indication: INSOMNIA
     Dosage: 12.5 MGS BEDTIME
     Dates: start: 20100513
  2. FLUREZEPAM [Suspect]
     Indication: INSOMNIA
     Dosage: 15 MGS BEDTIME
     Dates: start: 20100525

REACTIONS (4)
  - DYSGEUSIA [None]
  - NAUSEA [None]
  - POOR QUALITY SLEEP [None]
  - RASH MACULAR [None]
